FAERS Safety Report 24607088 (Version 1)
Quarter: 2024Q4

REPORT INFORMATION
  Report Type: Spontaneous
  Country: US (occurrence: None)
  Receive Date: 20241108
  Receipt Date: 20241108
  Transmission Date: 20250114
  Serious: Yes (Hospitalization)
  Sender: Public
  Company Number: None

PATIENT
  Age: 76 Year
  Sex: Male

DRUGS (2)
  1. PREGABALIN [Suspect]
     Active Substance: PREGABALIN
     Indication: Pain
     Dates: start: 20240808, end: 20240907
  2. METHADONE HYDROCHLORIDE [Suspect]
     Active Substance: METHADONE HYDROCHLORIDE
     Indication: Pain

REACTIONS (9)
  - Sedation [None]
  - Overdose [None]
  - Mental disorder [None]
  - Hypoxia [None]
  - Hypercapnia [None]
  - Respiratory failure [None]
  - COVID-19 [None]
  - Pneumonia [None]
  - Klebsiella infection [None]

NARRATIVE: CASE EVENT DATE: 20240907
